FAERS Safety Report 12065058 (Version 1)
Quarter: 2016Q1

REPORT INFORMATION
  Report Type: Spontaneous
  Country: US (occurrence: US)
  Receive Date: 20160210
  Receipt Date: 20160210
  Transmission Date: 20160526
  Serious: No
  Sender: FDA-Public Use
  Company Number: US-ALLERGAN-1513358US

PATIENT
  Age: 55 Year
  Sex: Female

DRUGS (2)
  1. BOTOX COSMETIC [Suspect]
     Active Substance: ONABOTULINUMTOXINA
     Indication: SKIN WRINKLING
     Dosage: 0.3 IN LEFT CANTHAL, 0.3 RIGHT CANTHAL, AND 0.4 GLABELLA, SINGLE
     Route: 030
     Dates: start: 20101014, end: 20101014
  2. BOTOX COSMETIC [Suspect]
     Active Substance: ONABOTULINUMTOXINA
     Indication: SKIN WRINKLING
     Dosage: 0.3 IN LEFT CANTHAL, 0.3 RIGHT CANTHAL, AND 0.4 GLABELLA, SINGLE
     Route: 030
     Dates: start: 20110208, end: 20110208

REACTIONS (1)
  - Injection site haemorrhage [Not Recovered/Not Resolved]

NARRATIVE: CASE EVENT DATE: 201507
